FAERS Safety Report 9107274 (Version 2)
Quarter: 2013Q1

REPORT INFORMATION
  Report Type: Spontaneous
  Country: JP (occurrence: JP)
  Receive Date: 20130221
  Receipt Date: 20130327
  Transmission Date: 20140127
  Serious: Yes (Life-Threatening, Hospitalization)
  Sender: FDA-Public Use
  Company Number: JP-ELI_LILLY_AND_COMPANY-JP201212007560

PATIENT
  Age: 42 Year
  Sex: Male
  Weight: 60 kg

DRUGS (6)
  1. ZYPREXA [Suspect]
     Indication: DEPRESSION
     Dosage: 10 MG, QD
     Route: 048
     Dates: start: 20120512, end: 20120531
  2. ARIPIPRAZOLE [Concomitant]
     Indication: DEPRESSIVE SYMPTOM
     Dosage: 6 MG, QD
     Route: 048
     Dates: start: 20120601, end: 20120622
  3. DIAZEPAM [Concomitant]
     Dosage: 2 MG, BID
     Route: 048
  4. FLUNITRAZEPAM [Concomitant]
     Dosage: 2 MG, QD
     Route: 048
  5. GOODMIN [Concomitant]
     Dosage: 0.25 MG, PRN
     Route: 048
  6. TOUGHMAC E [Concomitant]
     Dosage: 1 DF, TID
     Route: 048

REACTIONS (2)
  - Diabetic ketoacidosis [Recovered/Resolved]
  - Diabetes mellitus [Unknown]
